FAERS Safety Report 11722265 (Version 2)
Quarter: 2015Q4

REPORT INFORMATION
  Report Type: Spontaneous
  Country: US (occurrence: US)
  Receive Date: 20151111
  Receipt Date: 20151214
  Transmission Date: 20160304
  Serious: No
  Sender: FDA-Public Use
  Company Number: US-JNJFOC-20151015391

PATIENT
  Age: 85 Year
  Sex: Male
  Weight: 64.41 kg

DRUGS (4)
  1. CORICIDIN (ACETAMINOPHEN/CHLORPHENIRAMINE) [Suspect]
     Active Substance: ACETAMINOPHEN\CHLORPHENIRAMINE
     Indication: RHINORRHOEA
     Route: 048
     Dates: end: 20151013
  2. XARELTO [Suspect]
     Active Substance: RIVAROXABAN
     Indication: PRODUCT USED FOR UNKNOWN INDICATION
     Route: 048
  3. AMOXICILLIN. [Concomitant]
     Active Substance: AMOXICILLIN
  4. XARELTO [Suspect]
     Active Substance: RIVAROXABAN
     Indication: PRODUCT USED FOR UNKNOWN INDICATION
     Route: 048

REACTIONS (2)
  - Dizziness [Recovered/Resolved]
  - Syncope [Recovered/Resolved]

NARRATIVE: CASE EVENT DATE: 20151013
